FAERS Safety Report 17704433 (Version 1)
Quarter: 2020Q2

REPORT INFORMATION
  Report Type: Report from Study
  Country: US (occurrence: US)
  Receive Date: 20200424
  Receipt Date: 20200424
  Transmission Date: 20200714
  Serious: Yes (Hospitalization)
  Sender: FDA-Public Use
  Company Number: US-ROCHE-2586874

PATIENT
  Sex: Male

DRUGS (1)
  1. OCREVUS [Suspect]
     Active Substance: OCRELIZUMAB
     Indication: RELAPSING-REMITTING MULTIPLE SCLEROSIS
     Dosage: DATE OF TREATMENT 28/MAY/2019, 11/DEC/2018, 30/NOV/2018
     Route: 065
     Dates: start: 20181116

REACTIONS (3)
  - Staphylococcal infection [Recovering/Resolving]
  - Urinary tract infection [Recovering/Resolving]
  - Pneumonia [Recovered/Resolved]
